FAERS Safety Report 4641604-0 (Version None)
Quarter: 2005Q2

REPORT INFORMATION
  Report Type: 
  Country: None (occurrence: None)
  Receive Date: 20050420
  Receipt Date: 20050414
  Transmission Date: 20051028
  Serious: Yes (Congenital Anomaly)
  Sender: FDA-Public Use
  Company Number: A0042740A

PATIENT
  Age: 1 Day
  Sex: Male
  Weight: 2.7216 kg

DRUGS (1)
  1. LAMICTAL [Suspect]
     Dosage: 800 MG, ORAL
     Route: 048

REACTIONS (7)
  - ACROCHORDON [None]
  - ANOMALY OF EXTERNAL EAR CONGENITAL [None]
  - DRUG EXPOSURE DURING PREGNANCY [None]
  - INDUCED LABOUR [None]
  - MULTIPLE CONGENITAL ABNORMALITIES [None]
  - PREMATURE BABY [None]
  - TREMOR NEONATAL [None]
